FAERS Safety Report 9893677 (Version 1)
Quarter: 2014Q1

REPORT INFORMATION
  Report Type: Spontaneous
  Country: CO (occurrence: CO)
  Receive Date: 20140213
  Receipt Date: 20140213
  Transmission Date: 20141002
  Serious: Yes (Hospitalization)
  Sender: FDA-Public Use
  Company Number: CO-PFIZER INC-2014041281

PATIENT
  Age: 64 Year
  Sex: Male

DRUGS (1)
  1. CARDURAN XL [Suspect]
     Indication: BENIGN PROSTATIC HYPERPLASIA
     Dosage: 4 MG, ONCE DAILY
     Route: 048
     Dates: start: 201308

REACTIONS (2)
  - Road traffic accident [Not Recovered/Not Resolved]
  - Fracture [Not Recovered/Not Resolved]
